FAERS Safety Report 8303548-2 (Version None)
Quarter: 2012Q2

REPORT INFORMATION
  Report Type: 
  Country: None (occurrence: None)
  Receive Date: 20120418
  Receipt Date: 20120410
  Transmission Date: 20120825
  Serious: Yes (Other)
  Sender: FDA-Public Use
  Company Number: 2012SP015023

PATIENT
  Age: 55 Year
  Sex: Male

DRUGS (10)
  1. DEXAMETHASONE [Concomitant]
  2. MORPHINE [Concomitant]
  3. ONDANSETRON [Concomitant]
  4. PROPOFOL [Concomitant]
  5. SEVOFLURANE [Concomitant]
  6. ROCURONIUM BROMIDE [Suspect]
     Indication: NEUROMUSCULAR BLOCKADE
     Dosage: 0.6 MG/KG;ONCE;IV
     Route: 042
     Dates: start: 20120126, end: 20120126
  7. CEFUROXIME [Concomitant]
  8. MIDAZOLAM [Concomitant]
  9. FENTANYL [Concomitant]
  10. ACETAMINOPHEN [Concomitant]

REACTIONS (5)
  - DRUG INEFFECTIVE [None]
  - ENDOTRACHEAL INTUBATION COMPLICATION [None]
  - COUGH [None]
  - ANAESTHETIC COMPLICATION [None]
  - DRUG EFFECT DECREASED [None]
